FAERS Safety Report 8006974 (Version 1)
Quarter: 2012Q4

REPORT INFORMATION
  Report Type: 
  Country: BR (occurrence: BR)
  Receive Date: 20120914
  Receipt Date: 20120914
  Transmission Date: 20130627
  Serious: Yes (Other)
  Sender: FDA-Public Use
  Company Number: BR-BAXTER-2011BH020232

PATIENT

DRUGS (3)
  1. CYTOXAN [Suspect]
     Indication: DRUG EXPOSURE VIA MOTHER
     Route: 064
  2. PREDNISONE [Concomitant]
     Indication: DRUG EXPOSURE VIA MOTHER
  3. AZATHIOPRINE [Concomitant]
     Indication: DRUG EXPOSURE VIA MOTHER
     Route: 065

REACTIONS (4)
  - Premature baby [Recovered/Resolved]
  - Foetal exposure during pregnancy [Recovered/Resolved]
  - Maternal drugs affecting foetus [None]
  - Caesarean section [None]
